FAERS Safety Report 10653527 (Version 3)
Quarter: 2015Q1

REPORT INFORMATION
  Report Type: Spontaneous
  Country: FR (occurrence: FR)
  Receive Date: 20141216
  Receipt Date: 20150106
  Transmission Date: 20150720
  Serious: Yes (Other)
  Sender: FDA-Public Use
  Company Number: FR-ROCHE-1496671

PATIENT
  Sex: Female
  Weight: 55 kg

DRUGS (6)
  1. TAHOR [Concomitant]
     Active Substance: ATORVASTATIN CALCIUM
     Indication: DYSLIPIDAEMIA
     Route: 048
  2. TEMESTA (FRANCE) [Concomitant]
     Indication: INSOMNIA
     Route: 048
  3. ERIVEDGE [Suspect]
     Active Substance: VISMODEGIB
     Indication: BASAL CELL CARCINOMA
     Route: 048
     Dates: start: 201312, end: 20140513
  4. DIOSMINE [Concomitant]
     Active Substance: HESPERIDIN
  5. PIASCLEDINE (FRANCE) [Concomitant]
     Active Substance: AVOCADO OIL\SOYBEAN OIL
     Indication: OSTEOARTHRITIS
     Route: 048
  6. DOGMATIL [Concomitant]
     Active Substance: SULPIRIDE
     Indication: PSYCHOTIC DISORDER
     Route: 048

REACTIONS (3)
  - Alopecia [Not Recovered/Not Resolved]
  - Weight decreased [Unknown]
  - Muscle spasms [Recovered/Resolved]

NARRATIVE: CASE EVENT DATE: 201401
